FAERS Safety Report 21120871 (Version 3)
Quarter: 2025Q1

REPORT INFORMATION
  Report Type: Spontaneous
  Country: US (occurrence: US)
  Receive Date: 20220722
  Receipt Date: 20250128
  Transmission Date: 20250408
  Serious: No
  Sender: PFIZER
  Company Number: US-PFIZER INC-202200993007

PATIENT
  Age: 68 Year
  Sex: Female
  Weight: 58.957 kg

DRUGS (2)
  1. PAXLOVID [Suspect]
     Active Substance: NIRMATRELVIR\RITONAVIR
     Indication: COVID-19 treatment
     Route: 048
     Dates: start: 20220709, end: 20220715
  2. ALVESCO [Concomitant]
     Active Substance: CICLESONIDE
     Indication: Asthma prophylaxis
     Dosage: 2 SPRAYS DAILY INHALES
     Dates: start: 201601

REACTIONS (3)
  - COVID-19 [Recovered/Resolved]
  - Disease recurrence [Recovered/Resolved]
  - Inappropriate schedule of product administration [Unknown]

NARRATIVE: CASE EVENT DATE: 20220701
